FAERS Safety Report 18180580 (Version 1)
Quarter: 2020Q3

REPORT INFORMATION
  Report Type: Spontaneous
  Country: CA (occurrence: CA)
  Receive Date: 20200821
  Receipt Date: 20200821
  Transmission Date: 20201103
  Serious: Yes (Hospitalization)
  Sender: FDA-Public Use
  Company Number: CA-BAYER-2020-171712

PATIENT
  Age: 41 Year
  Sex: Female

DRUGS (2)
  1. ADVIL [IBUPROFEN] [Suspect]
     Active Substance: IBUPROFEN
     Indication: CHEST DISCOMFORT
     Dosage: 400 UNK, UNK
  2. AVELOX [Suspect]
     Active Substance: MOXIFLOXACIN HYDROCHLORIDE
     Indication: PNEUMONIA
     Dosage: 400 MG
     Route: 042

REACTIONS (4)
  - Cough [Recovered/Resolved]
  - Flushing [Recovered/Resolved]
  - Bronchial hyperreactivity [Recovered/Resolved]
  - Rash erythematous [Recovered/Resolved]
